FAERS Safety Report 6930875-3 (Version None)
Quarter: 2010Q3

REPORT INFORMATION
  Report Type: 
  Country: None (occurrence: None)
  Receive Date: 20100818
  Receipt Date: 20100810
  Transmission Date: 20110219
  Serious: Yes (Life-Threatening, Hospitalization, Other)
  Sender: FDA-Public Use
  Company Number: US-BAYER-201030353NA

PATIENT
  Age: 46 Year
  Sex: Female

DRUGS (4)
  1. MIRENA [Suspect]
     Indication: MENORRHAGIA
     Dosage: START DATE WAS REPORTED WITH INCONSISTENCIES (2 YEARS PRIOR TO REPORT AND ON FEB-2010)
     Route: 015
  2. MEDICATIONS [Concomitant]
     Indication: DEPRESSION
  3. PROZAC [Concomitant]
     Indication: DEPRESSION
  4. SLEEPING PILLS [Concomitant]

REACTIONS (12)
  - ABDOMINAL PAIN [None]
  - ABNORMAL BEHAVIOUR [None]
  - ANXIETY DISORDER [None]
  - B-CELL SMALL LYMPHOCYTIC LYMPHOMA [None]
  - DECREASED APPETITE [None]
  - FATIGUE [None]
  - FEELING ABNORMAL [None]
  - FEMALE SEXUAL DYSFUNCTION [None]
  - HAEMORRHAGIC ANAEMIA [None]
  - NIGHT SWEATS [None]
  - PANIC ATTACK [None]
  - WEIGHT DECREASED [None]
